APPROVED DRUG PRODUCT: ATAZANAVIR SULFATE
Active Ingredient: ATAZANAVIR SULFATE
Strength: EQ 150MG BASE
Dosage Form/Route: CAPSULE;ORAL
Application: A209717 | Product #002
Applicant: AMNEAL EU LTD
Approved: Jun 1, 2020 | RLD: No | RS: No | Type: DISCN